FAERS Safety Report 6543713-8 (Version None)
Quarter: 2010Q1

REPORT INFORMATION
  Report Type: 
  Country: None (occurrence: None)
  Receive Date: 20100120
  Receipt Date: 20100108
  Transmission Date: 20100710
  Serious: Yes (Death, Hospitalization, Other)
  Sender: FDA-Public Use
  Company Number: GB-PFIZER INC-2009289732

PATIENT
  Age: 53 Year
  Sex: Male
  Weight: 61.3 kg

DRUGS (1)
  1. SUTENT [Suspect]
     Indication: METASTATIC RENAL CELL CARCINOMA
     Dosage: 50 MG, 1X/DAY
     Route: 048
     Dates: start: 20090723, end: 20090923

REACTIONS (10)
  - ACUTE HEPATIC FAILURE [None]
  - BLOOD CREATININE INCREASED [None]
  - CONFUSIONAL STATE [None]
  - DECREASED APPETITE [None]
  - DIARRHOEA [None]
  - DRUG TOXICITY [None]
  - HALLUCINATION [None]
  - JAUNDICE [None]
  - LETHARGY [None]
  - RENAL FAILURE [None]
